FAERS Safety Report 18479883 (Version 4)
Quarter: 2021Q2

REPORT INFORMATION
  Report Type: Spontaneous
  Country: US (occurrence: US)
  Receive Date: 20201109
  Receipt Date: 20210603
  Transmission Date: 20210717
  Serious: Yes (Hospitalization)
  Sender: FDA-Public Use
  Company Number: US-PFIZER INC-2020231269

PATIENT
  Age: 75 Year
  Sex: Female
  Weight: 77.56 kg

DRUGS (3)
  1. IBRANCE [Suspect]
     Active Substance: PALBOCICLIB
     Dosage: UNK
     Dates: start: 20210401
  2. IBRANCE [Suspect]
     Active Substance: PALBOCICLIB
     Indication: BREAST CANCER
     Dosage: 125 MG, DAILY FOR 21 DAYS, AND THEN OFF FOR 7 DAYS
     Dates: start: 20200624, end: 20210204
  3. LETROZOLE. [Suspect]
     Active Substance: LETROZOLE
     Dosage: 2.5 MG

REACTIONS (7)
  - Discomfort [Unknown]
  - Myocardial infarction [Unknown]
  - Dyspnoea [Recovered/Resolved]
  - Nausea [Recovering/Resolving]
  - Pulmonary oedema [Recovered/Resolved]
  - Bronchitis [Unknown]
  - Ovarian disorder [Unknown]

NARRATIVE: CASE EVENT DATE: 202102
